FAERS Safety Report 5893920-2 (Version None)
Quarter: 2008Q3

REPORT INFORMATION
  Report Type: 
  Country: None (occurrence: None)
  Receive Date: 20080923
  Receipt Date: 20080912
  Transmission Date: 20090109
  Serious: Yes (Hospitalization)
  Sender: FDA-Public Use
  Company Number: US-ELI_LILLY_AND_COMPANY-US200808002501

PATIENT
  Age: 47 Year
  Sex: Male

DRUGS (7)
  1. HUMULIN R [Suspect]
     Dosage: UNK, UNK
     Dates: start: 20080401, end: 20080701
  2. HUMULIN R [Suspect]
  3. HUMALOG [Suspect]
     Dosage: UNK, UNK
     Dates: start: 20000101, end: 20080401
  4. HUMALOG [Suspect]
     Dates: start: 20080701, end: 20080701
  5. LANTUS [Concomitant]
     Dates: start: 20000101, end: 20060101
  6. LANTUS [Concomitant]
     Dosage: UNK, UNK
     Dates: start: 20080701
  7. LEVEMIR [Concomitant]
     Dates: start: 20060101, end: 20080601

REACTIONS (5)
  - CARDIAC DISORDER [None]
  - DIABETIC COMPLICATION [None]
  - IMPAIRED GASTRIC EMPTYING [None]
  - NEUROPATHY PERIPHERAL [None]
  - WRONG DRUG ADMINISTERED [None]
